FAERS Safety Report 8364925-7 (Version None)
Quarter: 2012Q2

REPORT INFORMATION
  Report Type: 
  Country: None (occurrence: None)
  Receive Date: 20120516
  Receipt Date: 20120508
  Transmission Date: 20120825
  Serious: No
  Sender: FDA-Public Use
  Company Number: US-B.I. PHARMACEUTICALS,INC./RIDGEFIELD-2012-BP-10393BP

PATIENT
  Sex: Female

DRUGS (3)
  1. HYDRALAZINE HCL [Concomitant]
     Indication: HYPERTENSION
     Dosage: 720 MG
     Route: 048
  2. CATAPRES-TTS-1 [Suspect]
     Indication: HYPERTENSION
     Dosage: 0.3 MG
     Route: 061
     Dates: end: 20120505
  3. CATAPRES 3 [Concomitant]
     Indication: HYPERTENSION
     Dosage: 0.9 MG
     Route: 048

REACTIONS (2)
  - HYPERTENSION [None]
  - BLOOD PRESSURE INCREASED [None]
